FAERS Safety Report 4815905-7 (Version None)
Quarter: 2005Q4

REPORT INFORMATION
  Report Type: 
  Country: None (occurrence: None)
  Receive Date: 20051031
  Receipt Date: 20051025
  Transmission Date: 20060501
  Serious: Yes (Hospitalization)
  Sender: FDA-Public Use
  Company Number: US-JNJFOC-20051001502

PATIENT
  Age: 70 Year
  Sex: Female
  Weight: 83.5 kg

DRUGS (6)
  1. DOXIL [Suspect]
     Indication: B-CELL LYMPHOMA
     Route: 042
  2. RITUXAN [Suspect]
     Indication: B-CELL LYMPHOMA
     Route: 042
  3. CYTOXAN [Suspect]
     Indication: B-CELL LYMPHOMA
     Route: 042
  4. VINCRISTINE [Suspect]
     Indication: B-CELL LYMPHOMA
     Route: 042
  5. PREDNISONE [Suspect]
     Indication: B-CELL LYMPHOMA
     Dosage: 80MG, ORAL, DAYS 1-5
     Route: 048
  6. ANALGESICS [Concomitant]
     Indication: PAIN

REACTIONS (3)
  - ATRIAL FIBRILLATION [None]
  - CONSTIPATION [None]
  - PYREXIA [None]
